FAERS Safety Report 8402751-0 (Version None)
Quarter: 2012Q2

REPORT INFORMATION
  Report Type: 
  Country: None (occurrence: None)
  Receive Date: 20120601
  Receipt Date: 20120524
  Transmission Date: 20120825
  Serious: Yes (Hospitalization)
  Sender: FDA-Public Use
  Company Number: US-BAYER-2012-044446

PATIENT
  Age: 24 Year
  Sex: Female
  Weight: 57.143 kg

DRUGS (2)
  1. VICODIN [Concomitant]
  2. YAZ [Suspect]
     Indication: CONTRACEPTION
     Dosage: UNK
     Dates: start: 20090301, end: 20090622

REACTIONS (6)
  - PULMONARY EMBOLISM [None]
  - PLEURITIC PAIN [None]
  - CHEST PAIN [None]
  - INJURY [None]
  - ANXIETY [None]
  - PAIN [None]
